FAERS Safety Report 8599234-4 (Version None)
Quarter: 2012Q3

REPORT INFORMATION
  Report Type: 
  Country: None (occurrence: None)
  Receive Date: 20120816
  Receipt Date: 20111220
  Transmission Date: 20120928
  Serious: No
  Sender: FDA-Public Use
  Company Number: US-AMGEN-USASP2011058518

PATIENT
  Age: 54 Year
  Sex: Male

DRUGS (2)
  1. NEUPOGEN [Suspect]
     Indication: BLOOD COUNT ABNORMAL
     Dosage: UNK
     Dates: start: 20111105
  2. PEGASYS [Concomitant]

REACTIONS (2)
  - ABDOMINAL DISCOMFORT [None]
  - FATIGUE [None]
